FAERS Safety Report 7575545-6 (Version None)
Quarter: 2011Q2

REPORT INFORMATION
  Report Type: 
  Country: None (occurrence: None)
  Receive Date: 20110627
  Receipt Date: 20110624
  Transmission Date: 20111010
  Serious: Yes (Hospitalization)
  Sender: FDA-Public Use
  Company Number: DE-MERCK-1106DEU00121

PATIENT
  Age: 63 Year
  Sex: Male
  Weight: 77 kg

DRUGS (4)
  1. ASPIRIN [Concomitant]
     Route: 048
     Dates: start: 20101101, end: 20101220
  2. ZOCOR [Suspect]
     Route: 048
     Dates: start: 20101101, end: 20101220
  3. LOSARTAN POTASSIUM [Concomitant]
     Indication: HYPERTENSION
     Route: 048
     Dates: end: 20101220
  4. RAMIPRIL [Concomitant]
     Indication: HYPERTENSION
     Route: 048

REACTIONS (3)
  - MYALGIA [None]
  - GAIT DISTURBANCE [None]
  - BLOOD CREATINE PHOSPHOKINASE INCREASED [None]
